FAERS Safety Report 8306319-6 (Version None)
Quarter: 2012Q2

REPORT INFORMATION
  Report Type: 
  Country: None (occurrence: None)
  Receive Date: 20120423
  Receipt Date: 20120410
  Transmission Date: 20120825
  Serious: Yes (Other)
  Sender: FDA-Public Use
  Company Number: US-BAXTER-2012BAX002851

PATIENT
  Sex: Male
  Weight: 92.162 kg

DRUGS (17)
  1. CEFEPIME [Suspect]
     Route: 042
     Dates: start: 20110603, end: 20110606
  2. ZEVALIN [Concomitant]
     Route: 042
     Dates: start: 20110512
  3. MEROPENEM [Suspect]
     Route: 042
     Dates: start: 20110606, end: 20110618
  4. DILAUDID [Concomitant]
     Route: 065
  5. RITUXAN [Concomitant]
     Route: 065
     Dates: start: 20110503
  6. ZEVALIN [Concomitant]
     Indication: MULTIPLE MYELOMA
     Route: 042
     Dates: start: 20110512, end: 20110512
  7. FAMCICLOVIR [Concomitant]
     Route: 065
  8. SEROQUEL [Concomitant]
  9. METRONIDAZOLE [Suspect]
     Indication: PROPHYLAXIS
     Route: 048
     Dates: start: 20110604, end: 20110605
  10. ASPIRIN [Concomitant]
     Route: 065
  11. NEURONTIN [Concomitant]
     Route: 065
  12. RITUXAN [Concomitant]
     Indication: MULTIPLE MYELOMA
     Route: 065
     Dates: start: 20110512, end: 20110512
  13. ATIVAN [Concomitant]
     Route: 065
  14. FENTANYL [Concomitant]
     Route: 065
  15. ATENOLOL [Concomitant]
     Route: 065
  16. ALLOPURINOL [Concomitant]
     Route: 065
  17. COLCHICINE [Concomitant]
     Route: 065

REACTIONS (7)
  - RASH [None]
  - HYPOPHAGIA [None]
  - FEBRILE NEUTROPENIA [None]
  - RASH MACULAR [None]
  - PERIRECTAL ABSCESS [None]
  - DIARRHOEA [None]
  - NEUTROPENIA [None]
